FAERS Safety Report 8510729-1 (Version None)
Quarter: 2012Q3

REPORT INFORMATION
  Report Type: 
  Country: None (occurrence: None)
  Receive Date: 20120716
  Receipt Date: 20120710
  Transmission Date: 20120928
  Serious: Yes (Other)
  Sender: FDA-Public Use
  Company Number: US-PFIZER INC-2012133928

PATIENT
  Sex: Male
  Weight: 93 kg

DRUGS (7)
  1. LYRICA [Suspect]
     Indication: JOINT INJURY
     Dosage: 10 MG, 2X/DAY
     Dates: start: 20120101, end: 20120101
  2. LYRICA [Suspect]
     Indication: PAIN
  3. NORCO [Concomitant]
     Indication: NECK PAIN
     Dosage: 15 MG, EVERY 6 HOURS
     Route: 048
     Dates: start: 20110801
  4. VALIUM [Concomitant]
     Indication: NECK PAIN
     Dosage: 10 MG, EVERY 8 HOURS
     Dates: start: 20120101
  5. VALIUM [Concomitant]
     Indication: MUSCLE RELAXANT THERAPY
  6. NORCO [Concomitant]
     Indication: MUSCULOSKELETAL PAIN
  7. VALIUM [Concomitant]
     Indication: MUSCULOSKELETAL PAIN

REACTIONS (3)
  - ANGER [None]
  - SUICIDAL IDEATION [None]
  - FATIGUE [None]
